FAERS Safety Report 20120863 (Version 1)
Quarter: 2021Q4

REPORT INFORMATION
  Report Type: Other
  Country: NL (occurrence: None)
  Receive Date: 20211127
  Receipt Date: 20211127
  Transmission Date: 20220303
  Serious: Yes (Other)
  Sender: FDA-Public Use
  Company Number: NL-ROCHE-2968089

PATIENT
  Age: 57 Year
  Sex: Male

DRUGS (3)
  1. TOCILIZUMAB [Suspect]
     Active Substance: TOCILIZUMAB
     Indication: COVID-19
     Dosage: ON DAY 3
     Route: 042
  2. DEXAMETHASONE [Concomitant]
     Active Substance: DEXAMETHASONE
     Dosage: CONTINUED FOR 17 DAYS
  3. NEOSTIGMINE [Concomitant]
     Active Substance: NEOSTIGMINE

REACTIONS (2)
  - Gastrointestinal perforation [Unknown]
  - Off label use [Unknown]
